FAERS Safety Report 17509886 (Version 1)
Quarter: 2020Q1

REPORT INFORMATION
  Report Type: Spontaneous
  Country: GB (occurrence: GB)
  Receive Date: 20200306
  Receipt Date: 20200306
  Transmission Date: 20200409
  Serious: Yes (Other)
  Sender: FDA-Public Use
  Company Number: GB-PFIZER INC-2020097041

PATIENT
  Age: 61 Year
  Sex: Female
  Weight: 56 kg

DRUGS (3)
  1. ADCAL [CALCIUM CARBONATE] [Concomitant]
  2. IBRANCE [Suspect]
     Active Substance: PALBOCICLIB
     Indication: NEOPLASM MALIGNANT
     Dosage: 75 MG, 125 MG, 100 MG
     Route: 048
     Dates: start: 20191003, end: 20200212
  3. AROMASIN [Concomitant]
     Active Substance: EXEMESTANE

REACTIONS (1)
  - Phlebitis [Not Recovered/Not Resolved]

NARRATIVE: CASE EVENT DATE: 20200130
